FAERS Safety Report 5355226-X (Version None)
Quarter: 2007Q2

REPORT INFORMATION
  Report Type: 
  Country: None (occurrence: None)
  Receive Date: 20070525
  Receipt Date: 20070213
  Transmission Date: 20071010
  Serious: Yes (Other)
  Sender: FDA-Public Use
  Company Number: PHEH2005US12206

PATIENT
  Age: 50 Year
  Sex: Male

DRUGS (3)
  1. RITALIN-SR [Suspect]
     Indication: NARCOLEPSY
     Dosage: SEE IMAGE
     Route: 048
     Dates: start: 20010101
  2. RITALIN [Suspect]
     Indication: NARCOLEPSY
     Dosage: 20 MG, QID, ORAL
     Route: 048
     Dates: start: 20010101
  3. CLONIDINE [Suspect]
     Dates: start: 20010101

REACTIONS (6)
  - AGITATION [None]
  - BLOOD GROWTH HORMONE INCREASED [None]
  - BLOOD PRESSURE INCREASED [None]
  - DRUG INTERACTION [None]
  - FATIGUE [None]
  - STASIS DERMATITIS [None]
